FAERS Safety Report 7553950-1 (Version None)
Quarter: 2011Q2

REPORT INFORMATION
  Report Type: 
  Country: None (occurrence: None)
  Receive Date: 20110614
  Receipt Date: 20110614
  Transmission Date: 20111010
  Serious: Yes (Hospitalization)
  Sender: FDA-Public Use
  Company Number: None

PATIENT
  Age: 65 Year
  Sex: Male
  Weight: 44.9061 kg

DRUGS (1)
  1. SULFAMETHOXAZOLE AND TRIMETHOPRIM [Suspect]
     Dosage: 1 TAB BID PO
     Route: 048
     Dates: start: 20110521, end: 20110524

REACTIONS (7)
  - HEADACHE [None]
  - NEUTROPHIL COUNT DECREASED [None]
  - LYMPHOCYTE COUNT ABNORMAL [None]
  - INFLAMMATION [None]
  - PYREXIA [None]
  - PAIN [None]
  - MENINGITIS ASEPTIC [None]
